FAERS Safety Report 19482124 (Version 2)
Quarter: 2021Q3

REPORT INFORMATION
  Report Type: Spontaneous
  Country: US (occurrence: US)
  Receive Date: 20210701
  Receipt Date: 20210716
  Transmission Date: 20211014
  Serious: Yes (Other)
  Sender: FDA-Public Use
  Company Number: US-PFIZER INC-2021757752

PATIENT
  Sex: Male

DRUGS (5)
  1. LIPITOR [Suspect]
     Active Substance: ATORVASTATIN CALCIUM
     Indication: HYPERTENSION
     Dosage: UNK
     Route: 048
  2. LENVIMA [Concomitant]
     Active Substance: LENVATINIB
     Dosage: UNK (LAST DOSE)
     Dates: start: 202104
  3. LENVIMA [Concomitant]
     Active Substance: LENVATINIB
     Indication: RENAL CELL CARCINOMA
     Dosage: 4 MG
     Route: 048
  4. LENVIMA [Concomitant]
     Active Substance: LENVATINIB
     Dosage: 8 MG, 1X/DAY
     Dates: start: 20201108
  5. LENVIMA [Concomitant]
     Active Substance: LENVATINIB
     Dosage: 8 MG, DAILY
     Route: 048
     Dates: start: 20210329

REACTIONS (7)
  - Swelling [Unknown]
  - Muscle spasms [Unknown]
  - Eye irritation [Unknown]
  - Insomnia [Unknown]
  - Peripheral swelling [Unknown]
  - Fluid retention [Unknown]
  - Swelling face [Unknown]

NARRATIVE: CASE EVENT DATE: 202106
